FAERS Safety Report 20333279 (Version 1)
Quarter: 2022Q1

REPORT INFORMATION
  Report Type: Spontaneous
  Country: US (occurrence: US)
  Receive Date: 20220113
  Receipt Date: 20220113
  Transmission Date: 20220423
  Serious: Yes (Other)
  Sender: FDA-Public Use
  Company Number: US-ABBVIE-22K-163-4230931-00

PATIENT
  Sex: Female

DRUGS (1)
  1. LUPRON [Suspect]
     Active Substance: LEUPROLIDE ACETATE
     Indication: Product used for unknown indication
     Route: 030

REACTIONS (9)
  - Surgery [Unknown]
  - Pancreatic injury [Unknown]
  - Poisoning [Unknown]
  - Hormone level abnormal [Unknown]
  - Gait inability [Unknown]
  - Vaginal disorder [Unknown]
  - Autoimmune disorder [Unknown]
  - Weight increased [Unknown]
  - Alopecia [Unknown]
